FAERS Safety Report 25037704 (Version 1)
Quarter: 2025Q1

REPORT INFORMATION
  Report Type: Spontaneous
  Country: FR (occurrence: FR)
  Receive Date: 20250304
  Receipt Date: 20250304
  Transmission Date: 20250408
  Serious: Yes (Life-Threatening, Other)
  Sender: MYLAN
  Company Number: None

PATIENT
  Age: 57 Year
  Sex: Female
  Weight: 55 kg

DRUGS (32)
  1. MIRTAZAPINE [Suspect]
     Active Substance: MIRTAZAPINE
     Indication: Product used for unknown indication
     Dates: start: 20250217, end: 20250217
  2. MIRTAZAPINE [Suspect]
     Active Substance: MIRTAZAPINE
     Route: 048
     Dates: start: 20250217, end: 20250217
  3. MIRTAZAPINE [Suspect]
     Active Substance: MIRTAZAPINE
     Route: 048
     Dates: start: 20250217, end: 20250217
  4. MIRTAZAPINE [Suspect]
     Active Substance: MIRTAZAPINE
     Dates: start: 20250217, end: 20250217
  5. METOCLOPRAMIDE [Suspect]
     Active Substance: METOCLOPRAMIDE
     Indication: Product used for unknown indication
     Dates: start: 20250217, end: 20250217
  6. METOCLOPRAMIDE [Suspect]
     Active Substance: METOCLOPRAMIDE
     Route: 048
     Dates: start: 20250217, end: 20250217
  7. METOCLOPRAMIDE [Suspect]
     Active Substance: METOCLOPRAMIDE
     Route: 048
     Dates: start: 20250217, end: 20250217
  8. METOCLOPRAMIDE [Suspect]
     Active Substance: METOCLOPRAMIDE
     Dates: start: 20250217, end: 20250217
  9. CYAMEMAZINE [Suspect]
     Active Substance: CYAMEMAZINE
     Indication: Product used for unknown indication
     Dates: start: 20250217, end: 20250217
  10. CYAMEMAZINE [Suspect]
     Active Substance: CYAMEMAZINE
     Route: 048
     Dates: start: 20250217, end: 20250217
  11. CYAMEMAZINE [Suspect]
     Active Substance: CYAMEMAZINE
     Route: 048
     Dates: start: 20250217, end: 20250217
  12. CYAMEMAZINE [Suspect]
     Active Substance: CYAMEMAZINE
     Dates: start: 20250217, end: 20250217
  13. BUPRENORPHINE [Suspect]
     Active Substance: BUPRENORPHINE
     Indication: Product used for unknown indication
     Dates: start: 20250217, end: 20250217
  14. BUPRENORPHINE [Suspect]
     Active Substance: BUPRENORPHINE
     Route: 048
     Dates: start: 20250217, end: 20250217
  15. BUPRENORPHINE [Suspect]
     Active Substance: BUPRENORPHINE
     Route: 048
     Dates: start: 20250217, end: 20250217
  16. BUPRENORPHINE [Suspect]
     Active Substance: BUPRENORPHINE
     Dates: start: 20250217, end: 20250217
  17. DIAZEPAM [Suspect]
     Active Substance: DIAZEPAM
     Indication: Product used for unknown indication
     Dates: start: 20250217, end: 20250217
  18. DIAZEPAM [Suspect]
     Active Substance: DIAZEPAM
     Route: 048
     Dates: start: 20250217, end: 20250217
  19. DIAZEPAM [Suspect]
     Active Substance: DIAZEPAM
     Route: 048
     Dates: start: 20250217, end: 20250217
  20. DIAZEPAM [Suspect]
     Active Substance: DIAZEPAM
     Dates: start: 20250217, end: 20250217
  21. OXAZEPAM [Suspect]
     Active Substance: OXAZEPAM
     Indication: Product used for unknown indication
     Dates: start: 20250217, end: 20250217
  22. OXAZEPAM [Suspect]
     Active Substance: OXAZEPAM
     Route: 048
     Dates: start: 20250217, end: 20250217
  23. OXAZEPAM [Suspect]
     Active Substance: OXAZEPAM
     Route: 048
     Dates: start: 20250217, end: 20250217
  24. OXAZEPAM [Suspect]
     Active Substance: OXAZEPAM
     Dates: start: 20250217, end: 20250217
  25. PROMETHAZINE [Suspect]
     Active Substance: PROMETHAZINE HYDROCHLORIDE
     Indication: Product used for unknown indication
     Dates: start: 20250217, end: 20250217
  26. PROMETHAZINE [Suspect]
     Active Substance: PROMETHAZINE HYDROCHLORIDE
     Route: 048
     Dates: start: 20250217, end: 20250217
  27. PROMETHAZINE [Suspect]
     Active Substance: PROMETHAZINE HYDROCHLORIDE
     Route: 048
     Dates: start: 20250217, end: 20250217
  28. PROMETHAZINE [Suspect]
     Active Substance: PROMETHAZINE HYDROCHLORIDE
     Dates: start: 20250217, end: 20250217
  29. TERALITHE [Suspect]
     Active Substance: LITHIUM CARBONATE
     Indication: Product used for unknown indication
     Dates: start: 20250217, end: 20250217
  30. TERALITHE [Suspect]
     Active Substance: LITHIUM CARBONATE
     Route: 048
     Dates: start: 20250217, end: 20250217
  31. TERALITHE [Suspect]
     Active Substance: LITHIUM CARBONATE
     Route: 048
     Dates: start: 20250217, end: 20250217
  32. TERALITHE [Suspect]
     Active Substance: LITHIUM CARBONATE
     Dates: start: 20250217, end: 20250217

REACTIONS (5)
  - Poisoning deliberate [Unknown]
  - Coma [Not Recovered/Not Resolved]
  - Acute respiratory distress syndrome [Not Recovered/Not Resolved]
  - Shock [Not Recovered/Not Resolved]
  - Suicide attempt [Unknown]

NARRATIVE: CASE EVENT DATE: 20250217
